FAERS Safety Report 6014229-2 (Version None)
Quarter: 2008Q4

REPORT INFORMATION
  Report Type: 
  Country: None (occurrence: None)
  Receive Date: 20081219
  Receipt Date: 20080310
  Transmission Date: 20090506
  Serious: No
  Sender: FDA-Public Use
  Company Number: A0711936A

PATIENT
  Age: 67 Year
  Sex: Male

DRUGS (3)
  1. AVODART [Suspect]
     Indication: BENIGN PROSTATIC HYPERPLASIA
     Dosage: .5MG PER DAY
     Route: 048
     Dates: start: 20071203, end: 20080222
  2. ATENOLOL [Concomitant]
  3. ALEVE [Concomitant]

REACTIONS (5)
  - ACTIVITIES OF DAILY LIVING IMPAIRED [None]
  - ARTHRITIS [None]
  - ASTHENIA [None]
  - INSOMNIA [None]
  - PAIN [None]
